FAERS Safety Report 5380901-0 (Version None)
Quarter: 2007Q2

REPORT INFORMATION
  Report Type: 
  Country: None (occurrence: None)
  Receive Date: 20070629
  Receipt Date: 20061211
  Transmission Date: 20071010
  Serious: Yes (Other)
  Sender: FDA-Public Use
  Company Number: US200612001843

PATIENT
  Age: 36 Year
  Sex: Female

DRUGS (6)
  1. HUMALOG [Suspect]
     Indication: DIABETES MELLITUS
     Dosage: 20 UG
     Dates: start: 20000101
  2. HUMALOG [Suspect]
     Indication: DIABETES MELLITUS
     Dosage: 20 UG
     Dates: start: 20061209
  3. HUMALOG [Suspect]
     Indication: DIABETES MELLITUS
     Dosage: 20 UG
     Dates: start: 20061210
  4. HUMALOG [Suspect]
     Indication: DIABETES MELLITUS
     Dosage: 20 UG
     Dates: start: 20061210
  5. HUMALOG [Suspect]
     Indication: DIABETES MELLITUS
     Dosage: 20 UG
     Dates: start: 20061211
  6. LANTUS [Concomitant]

REACTIONS (3)
  - BLOOD GLUCOSE DECREASED [None]
  - BLOOD GLUCOSE INCREASED [None]
  - LOSS OF CONSCIOUSNESS [None]
